FAERS Safety Report 5361332-6 (Version None)
Quarter: 2007Q2

REPORT INFORMATION
  Report Type: 
  Country: None (occurrence: None)
  Receive Date: 20070612
  Receipt Date: 20070528
  Transmission Date: 20071010
  Serious: Yes (Hospitalization)
  Sender: FDA-Public Use
  Company Number: DSA_29989_2007

PATIENT
  Sex: Female

DRUGS (6)
  1. TAVOR /00273201/ (TAVOR) 1 MG (NOT SPECIFIED) [Suspect]
     Dosage: (1 MG 1X ORAL)
     Route: 048
     Dates: start: 20070525, end: 20070525
  2. LUMINAL /00023201/ (LUMINAL) 100 MG (NOT SPECIFIED) [Suspect]
     Dosage: (100 MG 1X ORAL)
     Route: 048
     Dates: start: 20070525, end: 20070525
  3. ORFIRIL /00228501/ (ORFIRIL) 300 MG [Suspect]
     Dosage: (300 MG 1X ORAL)
     Route: 048
     Dates: start: 20070525, end: 20070525
  4. RISPERDAL [Suspect]
     Dosage: (3 MG 1X ORAL)
     Route: 048
     Dates: start: 20070525, end: 20070525
  5. SABRIL (SABRIL) 500 MG [Suspect]
     Dosage: (1000 MG 1X ORAL)
     Route: 048
     Dates: start: 20070525, end: 20070525
  6. ZONEGRAN (ZONEGRAN) 100 MG (NOT SPECIFIED) [Suspect]
     Dosage: (100 MG 1X ORAL)
     Route: 048
     Dates: start: 20070525, end: 20070525

REACTIONS (2)
  - ACCIDENTAL OVERDOSE [None]
  - MEDICATION ERROR [None]
